FAERS Safety Report 9433391 (Version 1)
Quarter: 2013Q3

REPORT INFORMATION
  Report Type: Spontaneous
  Country: DE (occurrence: DE)
  Receive Date: 20130731
  Receipt Date: 20130731
  Transmission Date: 20140515
  Serious: Yes (Death, Other)
  Sender: FDA-Public Use
  Company Number: DE-B.I. PHARMACEUTICALS,INC./RIDGEFIELD-2013-DE-01146DE

PATIENT
  Age: 79 Year
  Sex: Male
  Weight: 60 kg

DRUGS (8)
  1. PRADAXA [Suspect]
     Indication: ATRIAL FIBRILLATION
     Dosage: 220 MG
     Dates: end: 201110
  2. PRADAXA [Suspect]
     Dosage: 110 MG
     Dates: start: 201110, end: 201209
  3. THEOPHYLLIN [Concomitant]
     Indication: CHRONIC OBSTRUCTIVE PULMONARY DISEASE
     Dosage: 600 MG
     Dates: end: 201209
  4. RAMIPRIL [Concomitant]
     Dosage: 2.5 MG
  5. TORASEMID [Concomitant]
     Dosage: 20 MG
  6. NEBIVOLOL [Concomitant]
     Dosage: 5 MG
  7. SPIRIVA [Concomitant]
     Indication: CHRONIC OBSTRUCTIVE PULMONARY DISEASE
  8. BEROTEC SPRAY [Concomitant]
     Indication: CHRONIC OBSTRUCTIVE PULMONARY DISEASE

REACTIONS (5)
  - Cardiac failure [Fatal]
  - Haemoptysis [Unknown]
  - Skin haemorrhage [Unknown]
  - Haemorrhage [Unknown]
  - Fall [Unknown]
